FAERS Safety Report 6896716-8 (Version None)
Quarter: 2010Q3

REPORT INFORMATION
  Report Type: 
  Country: None (occurrence: None)
  Receive Date: 20100802
  Receipt Date: 20070128
  Transmission Date: 20110219
  Serious: No
  Sender: FDA-Public Use
  Company Number: US-PFIZER INC-2007008000

PATIENT
  Sex: Female
  Weight: 33.57 kg

DRUGS (10)
  1. LYRICA [Suspect]
     Indication: NEURALGIA
     Dates: start: 20061201
  2. LEXAPRO [Concomitant]
     Dates: start: 20060901
  3. MONTELUKAST SODIUM [Concomitant]
     Indication: ASTHMA
     Dates: start: 20020101
  4. ATROVENT [Concomitant]
     Indication: ASTHMA
     Dates: start: 20020101
  5. ALBUTEROL [Concomitant]
     Indication: ASTHMA
     Dates: start: 20020101
  6. PROTONIX [Concomitant]
     Dates: start: 20020101
  7. MAGNESIUM [Concomitant]
     Dates: start: 20000101
  8. VITAMIN E [Concomitant]
     Dates: start: 20000101
  9. PREDNISONE [Concomitant]
     Dates: start: 20070101
  10. METHADONE HCL [Concomitant]
     Dates: start: 20060901

REACTIONS (3)
  - DIZZINESS [None]
  - LETHARGY [None]
  - STARING [None]
